FAERS Safety Report 8320615-8 (Version None)
Quarter: 2012Q2

REPORT INFORMATION
  Report Type: 
  Country: None (occurrence: None)
  Receive Date: 20120430
  Receipt Date: 20120417
  Transmission Date: 20120825
  Serious: No
  Sender: FDA-Public Use
  Company Number: US-BAYER-2012-040383

PATIENT
  Age: 86 Year
  Sex: Female
  Weight: 56 kg

DRUGS (2)
  1. NAPROXEN SODIUM [Suspect]
     Dosage: UNK
     Dates: start: 20100101
  2. AMLODIPINE [Concomitant]

REACTIONS (2)
  - ABDOMINAL DISCOMFORT [None]
  - GLOSSODYNIA [None]
